FAERS Safety Report 9563951 (Version 2)
Quarter: 2013Q3

REPORT INFORMATION
  Report Type: Report from Study
  Country: US (occurrence: US)
  Receive Date: 20130928
  Receipt Date: 20130928
  Transmission Date: 20140515
  Serious: Yes (Hospitalization, Other)
  Sender: FDA-Public Use
  Company Number: US-BAYER-2013-076218

PATIENT
  Age: 58 Year
  Sex: Female
  Weight: 76.6 kg

DRUGS (13)
  1. NEXAVAR [Suspect]
     Indication: HEPATIC CANCER
     Dosage: 400 MG, BID
     Route: 048
     Dates: start: 20130620, end: 20130701
  2. NEXAVAR [Suspect]
     Indication: LYMPHOMA
     Dosage: 400 MG, BID
     Route: 048
     Dates: start: 20130715, end: 2013
  3. NEXAVAR [Suspect]
     Indication: HEPATIC CANCER
     Dosage: 200 MG, BID
     Dates: start: 2013
  4. OTHER ANTIDIARRHOEALS [Concomitant]
  5. VIREAD [Concomitant]
     Dosage: 200 MG
  6. PIOGLITAZONE [Concomitant]
     Dosage: 15 MG
  7. AMLODIPINE [Concomitant]
     Dosage: 10 MG
  8. FOLIC ACID [Concomitant]
  9. LASIX [Concomitant]
     Dosage: 20 MG
  10. SPIRONOLACTONE [Concomitant]
     Dosage: 25 MG, UNK
  11. IRON [Concomitant]
  12. FUROSEMIDE AL [Concomitant]
     Dosage: UNK
  13. CALCIUM AL [Concomitant]

REACTIONS (16)
  - Oedema peripheral [Recovered/Resolved]
  - Dysstasia [Unknown]
  - Abasia [Unknown]
  - Diarrhoea [Recovered/Resolved]
  - Bone pain [Unknown]
  - Rash [Recovered/Resolved]
  - Epistaxis [Unknown]
  - Gingival bleeding [Unknown]
  - Asthenia [Unknown]
  - Blood glucose decreased [Unknown]
  - Dizziness [Unknown]
  - Lip dry [None]
  - Musculoskeletal stiffness [None]
  - Paraesthesia [None]
  - Alopecia [None]
  - Weight decreased [None]
